FAERS Safety Report 24221793 (Version 1)
Quarter: 2024Q3

REPORT INFORMATION
  Report Type: Report from Study
  Country: US (occurrence: None)
  Receive Date: 20240819
  Receipt Date: 20240819
  Transmission Date: 20241016
  Serious: Yes (Other)
  Sender: ASTRAZENECA
  Company Number: 2022A252538

PATIENT
  Weight: 55.3 kg

DRUGS (1)
  1. LYNPARZA [Suspect]
     Active Substance: OLAPARIB
     Indication: Breast cancer
     Route: 048
     Dates: start: 202005

REACTIONS (7)
  - Abdominal discomfort [Unknown]
  - Constipation [Unknown]
  - Dysphagia [Unknown]
  - Nasal congestion [Unknown]
  - Nausea [Unknown]
  - Red blood cell count decreased [Unknown]
  - Dizziness [Unknown]
